FAERS Safety Report 16409906 (Version 2)
Quarter: 2019Q3

REPORT INFORMATION
  Report Type: Spontaneous
  Country: US (occurrence: US)
  Receive Date: 20190610
  Receipt Date: 20190712
  Transmission Date: 20191004
  Serious: Yes (Hospitalization, Other)
  Sender: FDA-Public Use
  Company Number: US-SA-2019SA155114

PATIENT
  Age: 44 Year
  Sex: Male

DRUGS (2)
  1. DUPIXENT [Suspect]
     Active Substance: DUPILUMAB
     Indication: DERMATITIS ATOPIC
     Dosage: 300 MG (2 INJECTION)
     Route: 058
     Dates: start: 20190411, end: 20190411
  2. DUPIXENT [Suspect]
     Active Substance: DUPILUMAB
     Dosage: 300 MG (1 INJECTION)
     Route: 058
     Dates: start: 20190423, end: 20190424

REACTIONS (2)
  - Staphylococcal infection [Unknown]
  - Hospitalisation [Unknown]
